FAERS Safety Report 6803979-3 (Version None)
Quarter: 2010Q2

REPORT INFORMATION
  Report Type: 
  Country: None (occurrence: None)
  Receive Date: 20100628
  Receipt Date: 20060526
  Transmission Date: 20101027
  Serious: No
  Sender: FDA-Public Use
  Company Number: US-PFIZER INC-2006069628

PATIENT

DRUGS (2)
  1. SUTENT [Suspect]
     Indication: DRUG USE FOR UNKNOWN INDICATION
     Route: 065
  2. AVASTIN [Concomitant]
     Route: 065

REACTIONS (1)
  - THROMBOCYTOPENIA [None]
